FAERS Safety Report 8874525 (Version 6)
Quarter: 2017Q4

REPORT INFORMATION
  Report Type: Spontaneous
  Country: US (occurrence: US)
  Receive Date: 20121030
  Receipt Date: 20171211
  Transmission Date: 20180321
  Serious: Yes (Hospitalization, Disabling, Other)
  Sender: FDA-Public Use
  Company Number: US-MERCK-1210USA008674

PATIENT
  Sex: Female
  Weight: 65.76 kg

DRUGS (3)
  1. ALENDRONATE SODIUM. [Suspect]
     Active Substance: ALENDRONATE SODIUM
     Indication: OSTEOPENIA
     Dosage: 70 MG, UNK
     Route: 065
     Dates: start: 20090424, end: 201009
  2. CALCIUM (UNSPECIFIED) [Concomitant]
     Active Substance: CALCIUM
     Indication: OSTEOPENIA
     Dosage: UNK
     Route: 065
     Dates: start: 20081223
  3. FOSAMAX [Suspect]
     Active Substance: ALENDRONATE SODIUM
     Indication: OSTEOPENIA
     Dosage: 70 MG, UNK
     Route: 048
     Dates: start: 20081223, end: 20101014

REACTIONS (23)
  - Low turnover osteopathy [Not Recovered/Not Resolved]
  - Arthritis [Unknown]
  - Appendicectomy [Unknown]
  - Osteoporosis [Unknown]
  - Atrial flutter [Recovered/Resolved]
  - Temporomandibular joint syndrome [Unknown]
  - Fibula fracture [Unknown]
  - Paraesthesia [Unknown]
  - Bone disorder [Recovering/Resolving]
  - Mitral valve prolapse [Unknown]
  - Bursitis [Unknown]
  - Migraine [Unknown]
  - Radiotherapy [Unknown]
  - Keratomileusis [Unknown]
  - Supraventricular tachycardia [Unknown]
  - Visual impairment [Unknown]
  - Bronchial hyperreactivity [Unknown]
  - Neck pain [Unknown]
  - Osteoporosis [Not Recovered/Not Resolved]
  - Knee arthroplasty [Recovering/Resolving]
  - Tonsillectomy [Unknown]
  - Joint stiffness [Unknown]
  - Arthralgia [Unknown]

NARRATIVE: CASE EVENT DATE: 20090529
